FAERS Safety Report 14573142 (Version 10)
Quarter: 2018Q4

REPORT INFORMATION
  Report Type: Spontaneous
  Country: CA (occurrence: CA)
  Receive Date: 20180226
  Receipt Date: 20181102
  Transmission Date: 20190204
  Serious: Yes (Other)
  Sender: FDA-Public Use
  Company Number: CA-CELLTRION INC.-2018CA017447

PATIENT

DRUGS (14)
  1. INFLECTRA [Suspect]
     Active Substance: INFLIXIMAB-DYYB
     Dosage: 500 MG/THEN EVERY 6 WEEKS
     Route: 042
     Dates: start: 20180504
  2. INSULIN                            /00646001/ [Concomitant]
     Active Substance: INSULIN NOS
  3. INFLECTRA [Suspect]
     Active Substance: INFLIXIMAB-DYYB
     Dosage: 500 MG CYCLIC EVERY 6 WEEKS
     Route: 042
     Dates: start: 20180621
  4. METHOTREXATE. [Concomitant]
     Active Substance: METHOTREXATE
     Dosage: UNK
  5. INFLECTRA [Suspect]
     Active Substance: INFLIXIMAB-DYYB
     Dosage: 500 MG CYCLIC EVERY 6 WEEKS
     Route: 042
     Dates: start: 20180621
  6. INFLECTRA [Suspect]
     Active Substance: INFLIXIMAB-DYYB
     Dosage: UNK
     Route: 042
     Dates: start: 20180906
  7. INFLECTRA [Suspect]
     Active Substance: INFLIXIMAB-DYYB
     Dosage: 500 MG, EVERY 6 WEEKS
     Route: 042
     Dates: start: 20171229
  8. LIPITOR [Concomitant]
     Active Substance: ATORVASTATIN CALCIUM
     Dosage: UNK
  9. TYLENOL WITH CODEINE [Concomitant]
     Active Substance: ACETAMINOPHEN\CODEINE PHOSPHATE
     Indication: PAIN
     Dosage: UNK
  10. GABAPENTIN. [Concomitant]
     Active Substance: GABAPENTIN
     Indication: URINARY TRACT DISORDER
     Dosage: UNK
  11. PANTOLOC                           /01263201/ [Concomitant]
     Active Substance: PANTOPRAZOLE SODIUM
     Indication: GASTROOESOPHAGEAL REFLUX DISEASE
     Dosage: UNK
  12. INFLECTRA [Suspect]
     Active Substance: INFLIXIMAB-DYYB
     Dosage: 500 MG CYCLIC EVERY 6 WEEKS
     Route: 042
     Dates: start: 20180802
  13. INFLECTRA [Suspect]
     Active Substance: INFLIXIMAB-DYYB
     Indication: PSORIATIC ARTHROPATHY
     Dosage: 500 MG, EVERY 6 WEEKS
     Route: 042
     Dates: start: 20160331
  14. INFLECTRA [Suspect]
     Active Substance: INFLIXIMAB-DYYB
     Dosage: UNK
     Route: 065
     Dates: start: 20180323

REACTIONS (15)
  - Vomiting [Unknown]
  - Nasopharyngitis [Unknown]
  - Herpes zoster [Recovered/Resolved]
  - Neuropathy peripheral [Unknown]
  - Sinus disorder [Unknown]
  - Ketoacidosis [Unknown]
  - Off label use [Unknown]
  - Foot fracture [Unknown]
  - Product use issue [Not Recovered/Not Resolved]
  - Malaise [Recovering/Resolving]
  - Product dose omission [Unknown]
  - Infusion related reaction [Unknown]
  - Cataract [Unknown]
  - Pathogen resistance [Unknown]
  - Dehydration [Unknown]

NARRATIVE: CASE EVENT DATE: 201712
